FAERS Safety Report 23389844 (Version 1)
Quarter: 2024Q1

REPORT INFORMATION
  Report Type: Spontaneous
  Country: US (occurrence: None)
  Receive Date: 20240111
  Receipt Date: 20240111
  Transmission Date: 20240409
  Serious: Yes (Other)
  Sender: FDA-Public Use
  Company Number: US-ROCHE-3489537

PATIENT
  Sex: Female

DRUGS (2)
  1. ACTEMRA [Suspect]
     Active Substance: TOCILIZUMAB
     Indication: Pulmonary fibrosis
     Dosage: STRENGTH: 400MG/20ML
     Route: 042
     Dates: start: 202108
  2. ACTEMRA [Suspect]
     Active Substance: TOCILIZUMAB
     Dosage: STRENGTH:80MG/4ML
     Route: 042
     Dates: start: 202108

REACTIONS (2)
  - Off label use [Unknown]
  - Pneumonia [Unknown]
